FAERS Safety Report 6760433-5 (Version None)
Quarter: 2010Q2

REPORT INFORMATION
  Report Type: 
  Country: None (occurrence: None)
  Receive Date: 20100608
  Receipt Date: 20100525
  Transmission Date: 20101027
  Serious: Yes (Hospitalization, Other)
  Sender: FDA-Public Use
  Company Number: PHHY2009IE60092

PATIENT
  Sex: Female

DRUGS (5)
  1. CLOZARIL [Suspect]
     Indication: SCHIZOPHRENIA
     Dosage: UNK,UNK
     Route: 048
     Dates: start: 20080128
  2. CLOZARIL [Suspect]
     Indication: SCHIZOAFFECTIVE DISORDER
     Dosage: 750 MG, QD
     Dates: start: 20091215, end: 20100422
  3. VALPROATE SODIUM [Concomitant]
  4. EPILIM CHRONO [Concomitant]
     Indication: SCHIZOAFFECTIVE DISORDER
     Dosage: UNK
     Route: 048
     Dates: start: 20071101
  5. EPILIM CHRONO [Concomitant]
     Dosage: 1.7 G, QD
     Dates: start: 20091215

REACTIONS (4)
  - FEELING COLD [None]
  - NEUTROPENIA [None]
  - PSYCHOTIC DISORDER [None]
  - WHITE BLOOD CELL COUNT DECREASED [None]
